FAERS Safety Report 8360876-2 (Version None)
Quarter: 2012Q2

REPORT INFORMATION
  Report Type: 
  Country: None (occurrence: None)
  Receive Date: 20120515
  Receipt Date: 20120508
  Transmission Date: 20120825
  Serious: Yes (Other)
  Sender: FDA-Public Use
  Company Number: US-JNJFOC-20120507919

PATIENT
  Age: 4 Decade
  Sex: Male

DRUGS (1)
  1. NUCYNTA ER [Suspect]
     Indication: ANALGESIC THERAPY
     Route: 048

REACTIONS (1)
  - HYPERTENSION [None]
